FAERS Safety Report 7369381-3 (Version None)
Quarter: 2011Q1

REPORT INFORMATION
  Report Type: 
  Country: None (occurrence: None)
  Receive Date: 20110323
  Receipt Date: 20110310
  Transmission Date: 20110831
  Serious: Yes (Hospitalization)
  Sender: FDA-Public Use
  Company Number: BR-SANOFI-AVENTIS-2011SA014985

PATIENT
  Age: 53 Year
  Sex: Male
  Weight: 87 kg

DRUGS (12)
  1. LANTUS [Suspect]
     Route: 058
  2. LOSARTAN POTASSIUM [Concomitant]
     Indication: BLOOD PRESSURE
     Route: 048
     Dates: start: 20030101
  3. ATENOLOL [Concomitant]
     Indication: HYPERTENSION
     Route: 048
     Dates: start: 20030101
  4. SIMVASTATIN [Concomitant]
     Route: 048
     Dates: start: 20100801
  5. AUTOPEN 24 [Concomitant]
  6. ALL OTHER THERAPEUTIC PRODUCTS [Suspect]
     Indication: IMMUNOSUPPRESSANT DRUG THERAPY
     Route: 065
  7. LANTUS [Suspect]
     Route: 058
     Dates: start: 20090101
  8. LANTUS [Suspect]
     Route: 058
  9. METICORTEN [Suspect]
     Indication: IMMUNOSUPPRESSANT DRUG THERAPY
  10. PROGRAF [Suspect]
     Indication: IMMUNOSUPPRESSANT DRUG THERAPY
     Route: 048
     Dates: start: 20090701
  11. OMEPRAZOLE [Concomitant]
     Indication: GASTRIC DISORDER
     Route: 048
     Dates: start: 20090701
  12. LANTUS [Suspect]
     Route: 058
     Dates: start: 20090101

REACTIONS (4)
  - HEPATIC NEOPLASM MALIGNANT [None]
  - RENAL COLIC [None]
  - HYPERGLYCAEMIA [None]
  - NEPHROLITHIASIS [None]
